FAERS Safety Report 9236280 (Version 1)
Quarter: 2013Q2

REPORT INFORMATION
  Report Type: Spontaneous
  Country: FR (occurrence: FR)
  Receive Date: 20130417
  Receipt Date: 20130417
  Transmission Date: 20140414
  Serious: Yes (Hospitalization)
  Sender: FDA-Public Use
  Company Number: FR-009507513-1304FRA005045

PATIENT
  Age: 64 Year
  Sex: Male
  Weight: 80 kg

DRUGS (6)
  1. TIENAM 500MG/500MG, POUDRE POUR PERFUSION [Suspect]
     Dosage: 1 G, TID
     Route: 042
     Dates: start: 201301, end: 20130205
  2. NOXAFIL [Suspect]
     Dosage: 200 MG, TID
     Route: 048
     Dates: start: 20130102, end: 20130116
  3. KIDROLASE [Suspect]
     Dosage: 12000 IU, ONCE
     Route: 042
     Dates: start: 20130115, end: 20130115
  4. KIDROLASE [Suspect]
     Dosage: 12000 IU, ONCE
     Dates: start: 20130117, end: 20130117
  5. KIDROLASE [Suspect]
     Dosage: 12000 IU, ONCE
     Route: 042
     Dates: start: 20130119, end: 20130119
  6. TRIFLUCAN [Suspect]
     Dosage: 400 MG, QD
     Route: 042
     Dates: start: 20130117, end: 20130128

REACTIONS (1)
  - Mixed liver injury [Recovered/Resolved]
